FAERS Safety Report 6641502-7 (Version None)
Quarter: 2010Q1

REPORT INFORMATION
  Report Type: 
  Country: None (occurrence: None)
  Receive Date: 20100317
  Receipt Date: 20100317
  Transmission Date: 20100710
  Serious: Yes (Other)
  Sender: FDA-Public Use
  Company Number: None

PATIENT
  Age: 89 Year
  Sex: Male

DRUGS (9)
  1. INSULIN GLARGINE [Suspect]
     Indication: TYPE 1 DIABETES MELLITUS
     Dosage: 25UNIT QHS SQ
     Route: 058
     Dates: start: 20100123
  2. INSULIN ASPART [Suspect]
     Dosage: 2 UNIT ONCE SQ
     Route: 058
  3. HEPARIN [Concomitant]
  4. ASPIRIN [Concomitant]
  5. ATENOLOL [Concomitant]
  6. FUROSEMIDE [Concomitant]
  7. LANSOPRAZOLE [Concomitant]
  8. PIPERACILLIN AND TAZOBACTAM [Concomitant]
  9. VANCOMYCIN [Concomitant]

REACTIONS (2)
  - ABDOMINAL ABSCESS [None]
  - HYPOGLYCAEMIA [None]
